FAERS Safety Report 6018283-3 (Version None)
Quarter: 2008Q4

REPORT INFORMATION
  Report Type: 
  Country: None (occurrence: None)
  Receive Date: 20081223
  Receipt Date: 20081220
  Transmission Date: 20090506
  Serious: Yes (Death)
  Sender: FDA-Public Use
  Company Number: PHHY2008BR32776

PATIENT
  Age: 72 Year
  Sex: Female

DRUGS (1)
  1. FORASEQ [Suspect]
     Dosage: UNK

REACTIONS (2)
  - CARDIAC ARREST [None]
  - RESPIRATORY ARREST [None]
